FAERS Safety Report 4885852-3 (Version None)
Quarter: 2006Q1

REPORT INFORMATION
  Report Type: 
  Country: None (occurrence: None)
  Receive Date: 20060120
  Receipt Date: 20060110
  Transmission Date: 20060701
  Serious: Yes (Hospitalization, Disabling)
  Sender: FDA-Public Use
  Company Number: AU-JNJFOC-20050902626

PATIENT
  Age: 14 Year
  Sex: Female
  Weight: 58.97 kg

DRUGS (2)
  1. RISPERDAL [Suspect]
     Route: 048
  2. CIPRAMIL [Concomitant]

REACTIONS (1)
  - DIABETES MELLITUS INSULIN-DEPENDENT [None]
